FAERS Safety Report 9322173 (Version 1)
Quarter: 2013Q2

REPORT INFORMATION
  Report Type: Report from Study
  Country: US (occurrence: US)
  Receive Date: 20130531
  Receipt Date: 20130531
  Transmission Date: 20140414
  Serious: Yes (Hospitalization)
  Sender: FDA-Public Use
  Company Number: US-MILLENNIUM PHARMACEUTICALS, INC.-2013-04012

PATIENT
  Age: 60 Year
  Sex: Male

DRUGS (3)
  1. VELCADE [Suspect]
     Indication: RENAL AMYLOIDOSIS
     Dosage: UNK
     Route: 065
     Dates: start: 20121126, end: 20130404
  2. DEXAMETHASONE [Suspect]
     Indication: RENAL AMYLOIDOSIS
     Dosage: UNK
     Route: 065
     Dates: start: 20121126, end: 20130404
  3. MELPHALAN [Concomitant]
     Indication: PRODUCT USED FOR UNKNOWN INDICATION
     Dosage: UNK
     Route: 065

REACTIONS (3)
  - Fall [Unknown]
  - Diarrhoea [Unknown]
  - Dehydration [Unknown]
